FAERS Safety Report 4347361-X (Version None)
Quarter: 2004Q2

REPORT INFORMATION
  Report Type: 
  Country: None (occurrence: None)
  Receive Date: 20040422
  Receipt Date: 20030507
  Transmission Date: 20050107
  Serious: Yes (Other)
  Sender: FDA-Public Use
  Company Number: US-SHR-03-007687

PATIENT
  Sex: 0

DRUGS (1)
  1. BETAPACE AF [Suspect]
     Dosage: 1ST DOSE, ORAL
     Route: 048

REACTIONS (1)
  - TORSADE DE POINTES [None]
